FAERS Safety Report 5019527-7 (Version None)
Quarter: 2006Q2

REPORT INFORMATION
  Report Type: 
  Country: None (occurrence: None)
  Receive Date: 20060601
  Receipt Date: 20060519
  Transmission Date: 20061013
  Serious: Yes (Other)
  Sender: FDA-Public Use
  Company Number: 2006BI007350

PATIENT
  Age: 54 Year
  Sex: Female
  Weight: 62.5964 kg

DRUGS (1)
  1. AVONEX [Suspect]
     Indication: MULTIPLE SCLEROSIS
     Dosage: 30 UG;QW;IM
     Route: 030
     Dates: start: 20040101

REACTIONS (6)
  - ARTHROPATHY [None]
  - BACK DISORDER [None]
  - CONVULSION [None]
  - DISORIENTATION [None]
  - ROAD TRAFFIC ACCIDENT [None]
  - SPINAL DISORDER [None]
